FAERS Safety Report 6250695-5 (Version None)
Quarter: 2009Q2

REPORT INFORMATION
  Report Type: 
  Country: None (occurrence: None)
  Receive Date: 20090626
  Receipt Date: 20090622
  Transmission Date: 20091009
  Serious: Yes (Other)
  Sender: FDA-Public Use
  Company Number: ADR5412009

PATIENT
  Age: 51 Year
  Sex: Female

DRUGS (6)
  1. CIPROFLOXACIN [Suspect]
  2. LYRICA [Concomitant]
  3. PHENYTOIN SODIUM CAP [Concomitant]
  4. GENERAL ANAESTHETIC [Concomitant]
  5. KEPPRA [Concomitant]
  6. LAMOTRIGINE [Concomitant]

REACTIONS (2)
  - EPILEPSY [None]
  - POTENTIATING DRUG INTERACTION [None]
